FAERS Safety Report 9723067 (Version 3)
Quarter: 2014Q2

REPORT INFORMATION
  Report Type: Report from Study
  Country: FR (occurrence: FR)
  Receive Date: 20131202
  Receipt Date: 20140609
  Transmission Date: 20141212
  Serious: Yes (Life-Threatening, Hospitalization)
  Sender: FDA-Public Use
  Company Number: FR-ROCHE-1046975

PATIENT
  Age: 72 Year
  Sex: Male
  Weight: 72 kg

DRUGS (28)
  1. OBINUTUZUMAB [Suspect]
     Indication: NON-HODGKIN^S LYMPHOMA UNSPECIFIED HISTOLOGY INDOLENT
     Dosage: LAST DOSE PRIOR TO SAE: 250 ML AT 4 MG/ML ON 28/FEB/2012.
     Route: 042
     Dates: start: 20120228
  2. CYCLOPHOSPHAMIDE [Suspect]
     Indication: NON-HODGKIN^S LYMPHOMA
     Dosage: LAST DOSE PRIOR TO SAE 1350MG ON 29/FEB/2012
     Route: 042
     Dates: start: 20120229
  3. DOXORUBICIN [Suspect]
     Indication: NON-HODGKIN^S LYMPHOMA
     Dosage: LAST DOSE PRIOR TO ONSET OF SAE 90 MG WAS TAKEN ON 29/FEB/2012
     Route: 042
     Dates: start: 20120229
  4. VINCRISTINE [Suspect]
     Indication: NON-HODGKIN^S LYMPHOMA
     Dosage: LAST DOSE PRIOR TO ONSET OF SAE 2 MG WAS TAKEN ON 29/FEB/2012
     Route: 050
     Dates: start: 20120229
  5. PREDNISONE [Suspect]
     Indication: NON-HODGKIN^S LYMPHOMA
     Dosage: LAST DOSE PRIOR TO ONSET OF SAE 100 MG WAS TAKEN ON 28/FEB/2012
     Route: 048
     Dates: start: 20120228
  6. SIMVASTATINE [Concomitant]
     Indication: DYSLIPIDAEMIA
  7. GLIMEPIRIDE [Concomitant]
     Indication: DIABETES MELLITUS
  8. CLOPIDOGREL [Concomitant]
     Indication: ARTERIOSCLEROSIS
  9. COOLMETEC [Concomitant]
     Indication: HYPERTENSION
  10. MOXONIDINE [Concomitant]
     Indication: HYPERTENSION
  11. SPIRONOLACTONE [Concomitant]
     Indication: HYPERTENSION
  12. NEBIVOLOL [Concomitant]
     Indication: HYPERTENSION
  13. PANTOPRAZOLE [Concomitant]
     Indication: PROPHYLAXIS AGAINST GASTROINTESTINAL ULCER
  14. EMEND [Concomitant]
     Indication: PREMEDICATION
     Route: 065
     Dates: start: 20120229, end: 20120626
  15. GRANISETRON [Concomitant]
     Indication: PREMEDICATION
     Route: 065
     Dates: start: 20120229, end: 20120626
  16. SODIUM BICARBONATE [Concomitant]
     Indication: STOMATITIS
     Route: 065
     Dates: start: 20120227, end: 20120626
  17. VALACICLOVIR [Concomitant]
     Indication: PREMEDICATION
     Route: 065
     Dates: start: 20120227, end: 20121128
  18. PARACETAMOL [Concomitant]
     Indication: PREMEDICATION
     Route: 065
     Dates: start: 20120228, end: 20120305
  19. PARACETAMOL [Concomitant]
     Indication: PYREXIA
  20. DEXCHLORPHENIRAMINE [Concomitant]
     Indication: PREMEDICATION
     Route: 065
     Dates: start: 20120228, end: 20120626
  21. LENOGRASTIM [Concomitant]
     Indication: APLASIA
     Route: 065
     Dates: start: 20120305, end: 20120311
  22. CARMELLOSE [Concomitant]
     Indication: CONJUNCTIVITIS
     Route: 065
     Dates: start: 20120228, end: 20120308
  23. GENTAMYCIN [Concomitant]
     Route: 065
     Dates: start: 20120303, end: 20120303
  24. GENTAMYCIN [Concomitant]
     Route: 065
     Dates: start: 20120308, end: 20120310
  25. SOLU-MEDROL [Concomitant]
     Indication: ERYTHEMA
     Route: 065
     Dates: start: 20120228, end: 20120228
  26. SOLU-MEDROL [Concomitant]
     Indication: INFUSION RELATED REACTION
  27. AUGMENTIN [Concomitant]
     Indication: INFECTION
     Route: 065
     Dates: start: 2012, end: 2012
  28. CIFLOX (FRANCE) [Concomitant]
     Indication: INFECTION
     Route: 065
     Dates: start: 2012, end: 2012

REACTIONS (2)
  - Febrile neutropenia [Recovered/Resolved]
  - Thrombocytopenia [Recovered/Resolved]
